FAERS Safety Report 16924252 (Version 2)
Quarter: 2019Q4

REPORT INFORMATION
  Report Type: Other
  Country: DE (occurrence: DE)
  Receive Date: 20191016
  Receipt Date: 20191217
  Transmission Date: 20200122
  Serious: Yes (Life-Threatening, Other)
  Sender: FDA-Public Use
  Company Number: DE-MACLEODS PHARMACEUTICALS US LTD-MAC2019023282

PATIENT

DRUGS (6)
  1. METAMIZOL [Concomitant]
     Active Substance: METAMIZOLE SODIUM
     Indication: FIBROMYALGIA
     Dosage: 2000 MILLIGRAM, TAKING FOR YEARS
     Route: 048
  2. RAMIPRIL. [Concomitant]
     Active Substance: RAMIPRIL
     Indication: HYPERTENSION
     Dosage: 5 MILLIGRAM, TAKING FOR YEARS
     Route: 048
  3. BISOPROLOL [Concomitant]
     Active Substance: BISOPROLOL
     Indication: TACHYCARDIA
     Dosage: 1.25 MG, TAKING FOR YEARS
     Route: 048
  4. AMITRIPTYLIN [Concomitant]
     Active Substance: AMITRIPTYLINE
     Indication: FIBROMYALGIA
     Dosage: 2000 MILLIGRAM, TAKING FOR YEARS
     Route: 048
  5. CELECOXIB. [Suspect]
     Active Substance: CELECOXIB
     Indication: FIBROMYALGIA
     Dosage: UNK
     Route: 048
  6. HCT [Concomitant]
     Active Substance: HYDROCHLOROTHIAZIDE
     Indication: HYPERTENSION
     Dosage: 12.5 MILLIGRAM, TAKING FOR YEARS
     Route: 048

REACTIONS (1)
  - Acute myocardial infarction [Unknown]

NARRATIVE: CASE EVENT DATE: 20190723
